FAERS Safety Report 7396329-8 (Version None)
Quarter: 2011Q1

REPORT INFORMATION
  Report Type: 
  Country: None (occurrence: None)
  Receive Date: 20110325
  Receipt Date: 20110312
  Transmission Date: 20110831
  Serious: Yes (Disabling, Other)
  Sender: FDA-Public Use
  Company Number: 2011P1004921

PATIENT
  Age: 66 Year
  Sex: Female
  Weight: 74.8435 kg

DRUGS (9)
  1. SYNTHROID [Concomitant]
  2. COMPAZINE [Concomitant]
  3. GLUCOPHAGE [Concomitant]
  4. ATIVAN [Concomitant]
  5. STARLIR [Concomitant]
  6. JANUVIA [Concomitant]
  7. ZARONTIN [Concomitant]
  8. FENTANYL-25 [Suspect]
     Indication: CANCER PAIN
     Dosage: PATCH;Q3D;TDER
     Route: 062
     Dates: start: 20110201
  9. ZOFRAN [Concomitant]

REACTIONS (5)
  - SOMNOLENCE [None]
  - ABASIA [None]
  - ACTIVITIES OF DAILY LIVING IMPAIRED [None]
  - ASTHENIA [None]
  - SPEECH DISORDER [None]
